FAERS Safety Report 22385279 (Version 1)
Quarter: 2023Q2

REPORT INFORMATION
  Report Type: Spontaneous
  Country: GR (occurrence: GR)
  Receive Date: 20230530
  Receipt Date: 20230530
  Transmission Date: 20230722
  Serious: Yes (Hospitalization, Other)
  Sender: FDA-Public Use
  Company Number: GR-AstraZeneca-2023A118160

PATIENT
  Age: 67 Year
  Sex: Male

DRUGS (2)
  1. TRASTUZUMAB DERUXTECAN [Suspect]
     Active Substance: TRASTUZUMAB DERUXTECAN
     Indication: Adenocarcinoma gastric
     Dosage: 6.4 MG/KG
     Route: 042
  2. TRASTUZUMAB DERUXTECAN [Suspect]
     Active Substance: TRASTUZUMAB DERUXTECAN
     Dosage: REDUCED DOSES BY 20%
     Route: 042

REACTIONS (3)
  - Haemorrhagic ascites [Unknown]
  - Febrile neutropenia [Unknown]
  - Thrombocytopenia [Unknown]
